FAERS Safety Report 13160904 (Version 1)
Quarter: 2017Q1

REPORT INFORMATION
  Report Type: Spontaneous
  Country: US (occurrence: US)
  Receive Date: 20170130
  Receipt Date: 20170130
  Transmission Date: 20170428
  Serious: No
  Sender: FDA-Public Use
  Company Number: US-ASTRAZENECA-2017SE08908

PATIENT
  Sex: Female
  Weight: 81.6 kg

DRUGS (5)
  1. GLYBURIDE. [Concomitant]
     Active Substance: GLYBURIDE
     Indication: TYPE 2 DIABETES MELLITUS
     Route: 048
  2. BYETTA [Suspect]
     Active Substance: EXENATIDE
     Indication: TYPE 2 DIABETES MELLITUS
     Route: 058
     Dates: start: 20170123
  3. BYETTA [Suspect]
     Active Substance: EXENATIDE
     Indication: TYPE 2 DIABETES MELLITUS
     Route: 058
  4. METFORMIN [Concomitant]
     Active Substance: METFORMIN HYDROCHLORIDE
     Indication: TYPE 2 DIABETES MELLITUS
     Route: 048
  5. BYETTA [Suspect]
     Active Substance: EXENATIDE
     Indication: TYPE 2 DIABETES MELLITUS
     Route: 058

REACTIONS (5)
  - Memory impairment [Unknown]
  - Drug dose omission [Unknown]
  - Nausea [Unknown]
  - Vomiting [Unknown]
  - Weight decreased [Unknown]
